FAERS Safety Report 6340888-0 (Version None)
Quarter: 2009Q3

REPORT INFORMATION
  Report Type: 
  Country: None (occurrence: None)
  Receive Date: 20090904
  Receipt Date: 20090901
  Transmission Date: 20100115
  Serious: Yes (Death)
  Sender: FDA-Public Use
  Company Number: AT-JNJFOC-20090709254

PATIENT
  Sex: Male

DRUGS (1)
  1. RISPERDAL CONSTA [Suspect]
     Indication: DRUG USE FOR UNKNOWN INDICATION
     Dosage: SINCE A LOT OF YEARS
     Route: 030

REACTIONS (6)
  - CARDIAC FAILURE [None]
  - CARDIOMEGALY [None]
  - MYOCARDIAL ISCHAEMIA [None]
  - OBESITY [None]
  - PULMONARY OEDEMA [None]
  - TOBACCO ABUSE [None]
